FAERS Safety Report 9559329 (Version 1)
Quarter: 2013Q3

REPORT INFORMATION
  Report Type: Spontaneous
  Country: US (occurrence: None)
  Receive Date: 20130906
  Receipt Date: 20130906
  Transmission Date: 20140515
  Serious: No
  Sender: FDA-Public Use
  Company Number: 163-POMAL-13081141

PATIENT
  Age: 65 Year
  Sex: Male
  Weight: 112.86 kg

DRUGS (12)
  1. POMALYST (POMALIDOMIDE) (4 MILLIGRAM, CAPSULES) [Suspect]
     Indication: PLASMA CELL MYELOMA
     Dosage: 4 MG, 1 IN 1 D, PO
     Route: 048
     Dates: start: 201306
  2. VELCADE (BORTEZOMIB) [Concomitant]
  3. ACYCLOVIR (ACICLOVIR) [Concomitant]
  4. ASPIRIN (ACETYLSALICYLIC ACID) [Concomitant]
  5. DIOVAN (VALSARTAN) [Concomitant]
  6. FOLATE (FOLIC ACID) [Concomitant]
  7. INSULIN (INSULIN) [Concomitant]
  8. MAGNESIUM (MAGNESIUM) [Concomitant]
  9. PRILOSEC [Concomitant]
  10. SIMVASTATIN (SIMVASTATIN)) [Concomitant]
  11. VITAMIN D (ERGOCALCIFEROL) [Concomitant]
  12. ZOMETA (ZOLEDRONIC ACID) [Concomitant]

REACTIONS (2)
  - Blood creatine phosphokinase increased [None]
  - Blood creatine phosphokinase increased [None]
